FAERS Safety Report 22610980 (Version 2)
Quarter: 2023Q4

REPORT INFORMATION
  Report Type: Report from Study
  Country: AU (occurrence: AU)
  Receive Date: 20230616
  Receipt Date: 20231013
  Transmission Date: 20240110
  Serious: Yes (Hospitalization)
  Sender: FDA-Public Use
  Company Number: AU-GENMAB-2023-00700

PATIENT
  Age: 74 Year
  Sex: Male
  Weight: 60.7 kg

DRUGS (63)
  1. EPCORITAMAB [Suspect]
     Active Substance: EPCORITAMAB
     Indication: Mantle cell lymphoma stage IV
     Dosage: C1D1
     Route: 058
     Dates: start: 20211122, end: 20211122
  2. EPCORITAMAB [Suspect]
     Active Substance: EPCORITAMAB
     Dosage: C1D8
     Route: 058
     Dates: start: 20211129, end: 20211129
  3. EPCORITAMAB [Suspect]
     Active Substance: EPCORITAMAB
     Dosage: C1D15 - C3D22
     Route: 058
     Dates: start: 20211207, end: 20220211
  4. EPCORITAMAB [Suspect]
     Active Substance: EPCORITAMAB
     Dosage: CD4D1 - C9D15
     Route: 058
     Dates: start: 20220218, end: 20220905
  5. EPCORITAMAB [Suspect]
     Active Substance: EPCORITAMAB
     Dosage: C10D1 - C16D1
     Route: 058
     Dates: start: 20220919, end: 20230308
  6. EPCORITAMAB [Suspect]
     Active Substance: EPCORITAMAB
     Dosage: RPD1
     Route: 058
     Dates: start: 20230515, end: 20230515
  7. EPCORITAMAB [Suspect]
     Active Substance: EPCORITAMAB
     Dosage: RPD8
     Route: 058
     Dates: start: 20230522, end: 20230522
  8. EPCORITAMAB [Suspect]
     Active Substance: EPCORITAMAB
     Dosage: RPD15 - RPD22
     Route: 058
     Dates: start: 20230529, end: 20230605
  9. EPCORITAMAB [Suspect]
     Active Substance: EPCORITAMAB
     Dosage: C18D1 - ONWARDS
     Route: 058
     Dates: start: 20230613
  10. LORATADINE [Concomitant]
     Active Substance: LORATADINE
     Indication: Premedication
     Dosage: 10 MILLIGRAM, SINGLE
     Route: 048
     Dates: start: 20221017, end: 20221017
  11. LORATADINE [Concomitant]
     Active Substance: LORATADINE
     Dosage: 10 MILLIGRAM, SINGLE
     Route: 048
     Dates: start: 20221114, end: 20221114
  12. LORATADINE [Concomitant]
     Active Substance: LORATADINE
     Dosage: 10 MILLIGRAM, SINGLE
     Route: 048
     Dates: start: 20221212, end: 20221212
  13. LORATADINE [Concomitant]
     Active Substance: LORATADINE
     Dosage: 10 MILLIGRAM, SINGLE
     Route: 048
     Dates: start: 20230112, end: 20230112
  14. LORATADINE [Concomitant]
     Active Substance: LORATADINE
     Dosage: 10 MILLIGRAM, SINGLE
     Route: 048
     Dates: start: 20230206, end: 20230206
  15. LORATADINE [Concomitant]
     Active Substance: LORATADINE
     Dosage: 10 MILLIGRAM, SINGLE
     Route: 048
     Dates: start: 20230308, end: 20230308
  16. LORATADINE [Concomitant]
     Active Substance: LORATADINE
     Dosage: 10 MILLIGRAM, SINGLE
     Route: 048
     Dates: start: 20230515, end: 20230515
  17. LORATADINE [Concomitant]
     Active Substance: LORATADINE
     Dosage: 10 MILLIGRAM, SINGLE
     Route: 048
     Dates: start: 20230522, end: 20230522
  18. LORATADINE [Concomitant]
     Active Substance: LORATADINE
     Dosage: 10 MILLIGRAM, SINGLE
     Route: 048
     Dates: start: 20230529, end: 20230529
  19. LORATADINE [Concomitant]
     Active Substance: LORATADINE
     Dosage: 10 MILLIGRAM, SINGLE
     Route: 048
     Dates: start: 20230605, end: 20230605
  20. LORATADINE [Concomitant]
     Active Substance: LORATADINE
     Dosage: 10 MILLIGRAM, SINGLE
     Route: 048
     Dates: start: 20230613, end: 20230613
  21. ACETAMINOPHEN [Concomitant]
     Active Substance: ACETAMINOPHEN
     Indication: Premedication
     Dosage: 1 GRAM, SINGLE
     Route: 048
     Dates: start: 20221017, end: 20221017
  22. ACETAMINOPHEN [Concomitant]
     Active Substance: ACETAMINOPHEN
     Dosage: 1 GRAM, SINGLE
     Route: 048
     Dates: start: 20221114, end: 20221114
  23. ACETAMINOPHEN [Concomitant]
     Active Substance: ACETAMINOPHEN
     Dosage: 1 GRAM, SINGLE
     Route: 048
     Dates: start: 20221212, end: 20221212
  24. ACETAMINOPHEN [Concomitant]
     Active Substance: ACETAMINOPHEN
     Dosage: 1 GRAM, SINGLE
     Route: 048
     Dates: start: 20230112, end: 20230112
  25. ACETAMINOPHEN [Concomitant]
     Active Substance: ACETAMINOPHEN
     Dosage: 1 GRAM, SINGLE
     Route: 048
     Dates: start: 20230206, end: 20230206
  26. ACETAMINOPHEN [Concomitant]
     Active Substance: ACETAMINOPHEN
     Dosage: 1 GRAM, SINGLE
     Route: 048
     Dates: start: 20230308, end: 20230308
  27. ACETAMINOPHEN [Concomitant]
     Active Substance: ACETAMINOPHEN
     Dosage: 1 GRAM, SINGLE
     Route: 048
     Dates: start: 20230515, end: 20230515
  28. ACETAMINOPHEN [Concomitant]
     Active Substance: ACETAMINOPHEN
     Dosage: 1 GRAM, SINGLE
     Route: 048
     Dates: start: 20230522, end: 20230522
  29. ACETAMINOPHEN [Concomitant]
     Active Substance: ACETAMINOPHEN
     Dosage: 1 GRAM, SINGLE
     Route: 048
     Dates: start: 20230529, end: 20230529
  30. ACETAMINOPHEN [Concomitant]
     Active Substance: ACETAMINOPHEN
     Dosage: 1 GRAM, SINGLE
     Route: 048
     Dates: start: 20230605, end: 20230605
  31. ACETAMINOPHEN [Concomitant]
     Active Substance: ACETAMINOPHEN
     Dosage: 1 GRAM, SINGLE
     Route: 048
     Dates: start: 20230613, end: 20230613
  32. ACETAMINOPHEN [Concomitant]
     Active Substance: ACETAMINOPHEN
     Dosage: 1 GRAM, SINGLE
     Route: 048
     Dates: start: 20230613, end: 20230613
  33. PREDNISOLONE [Concomitant]
     Active Substance: PREDNISOLONE
     Indication: Premedication
     Dosage: 100 MILLIGRAM, SINGLE
     Route: 048
     Dates: start: 20230515, end: 20230515
  34. PREDNISOLONE [Concomitant]
     Active Substance: PREDNISOLONE
     Indication: Prophylaxis
     Dosage: 100 MILLIGRAM, QD
     Route: 048
     Dates: start: 20230516, end: 20230518
  35. PREDNISOLONE [Concomitant]
     Active Substance: PREDNISOLONE
     Dosage: 100 MILLIGRAM, SINGLE
     Route: 048
     Dates: start: 20230522, end: 20230522
  36. PREDNISOLONE [Concomitant]
     Active Substance: PREDNISOLONE
     Dosage: 100 MILLIGRAM, QD
     Dates: start: 20230523, end: 20230525
  37. PREDNISOLONE [Concomitant]
     Active Substance: PREDNISOLONE
     Dosage: 100 MILLIGRAM, SINGLE
     Route: 048
     Dates: start: 20230529, end: 20230529
  38. PREDNISOLONE [Concomitant]
     Active Substance: PREDNISOLONE
     Dosage: 100 MILLIGRAM, QD
     Route: 048
     Dates: start: 20230530, end: 20230601
  39. PREDNISOLONE [Concomitant]
     Active Substance: PREDNISOLONE
     Dosage: 80 MILLIGRAM, SINGLE
     Route: 048
     Dates: start: 20230605, end: 20230605
  40. PREDNISOLONE [Concomitant]
     Active Substance: PREDNISOLONE
     Dosage: 80 MILLIGRAM, QD
     Route: 048
     Dates: start: 20230606, end: 20230608
  41. ALLOPURINOL [Concomitant]
     Active Substance: ALLOPURINOL
     Dosage: 150 MILLIGRAM, QD
     Route: 048
     Dates: start: 20220919
  42. AMIODARONE [Concomitant]
     Active Substance: AMIODARONE
     Indication: Sinus node dysfunction
     Dosage: 200 MILLIGRAM, QD
     Route: 048
     Dates: start: 20220919
  43. APIXABAN [Concomitant]
     Active Substance: APIXABAN
     Indication: Prophylaxis
     Dosage: 5 MILLIGRAM, BID
     Route: 048
     Dates: start: 20220919, end: 20221017
  44. APIXABAN [Concomitant]
     Active Substance: APIXABAN
     Dosage: 5 MILLIGRAM, QD
     Route: 048
     Dates: start: 20221018, end: 20230328
  45. ASPIRIN [Concomitant]
     Active Substance: ASPIRIN
     Indication: Sinus node dysfunction
     Dosage: 100 MILLIGRAM, QD
     Route: 048
     Dates: start: 20220919, end: 20230328
  46. ATORVASTATIN [Concomitant]
     Active Substance: ATORVASTATIN
     Dosage: 40 MILLIGRAM, QD (QN)
     Route: 048
     Dates: start: 20220919
  47. CHOLECALCIFEROL [Concomitant]
     Active Substance: CHOLECALCIFEROL
     Indication: Supplementation therapy
     Dosage: 1000 INTERNATIONAL UNIT, QD
     Route: 048
     Dates: start: 20220919
  48. ASCORBIC ACID\FERROUS SULFATE [Concomitant]
     Active Substance: ASCORBIC ACID\FERROUS SULFATE
     Indication: Supplementation therapy
     Dosage: DOSE : 1 TABLET
     Route: 048
     Dates: start: 20220919
  49. FILGRASTIM [Concomitant]
     Active Substance: FILGRASTIM
     Indication: Neutrophil count decreased
     Dosage: 300 MICROGRAM, SINGLE
     Route: 058
     Dates: start: 20221114, end: 20221114
  50. FILGRASTIM [Concomitant]
     Active Substance: FILGRASTIM
     Dosage: 300 MICROGRAM, SINGLE
     Route: 058
     Dates: start: 20221116, end: 20221116
  51. FILGRASTIM [Concomitant]
     Active Substance: FILGRASTIM
     Dosage: 300 MICROGRAM, SINGLE
     Route: 058
     Dates: start: 20221122, end: 20221122
  52. IMMUNE GLOBULIN NOS [Concomitant]
     Active Substance: IMMUNE GLOBULIN NOS
     Indication: Hypogammaglobulinaemia
     Dosage: 22.5 GRAM, QM
     Route: 042
     Dates: start: 20220501, end: 20221017
  53. IMMUNE GLOBULIN NOS [Concomitant]
     Active Substance: IMMUNE GLOBULIN NOS
     Dosage: 22.5 GRAM, QM
     Route: 042
     Dates: start: 20230414
  54. MAGNESIUM [Concomitant]
     Active Substance: MAGNESIUM
     Indication: Supplementation therapy
     Dosage: DOSE : 1 TABLET
     Route: 048
     Dates: start: 20220919
  55. METOPROLOL [Concomitant]
     Active Substance: METOPROLOL
     Indication: Sinus node dysfunction
     Dosage: 25 MILLIGRAM, BID
     Route: 048
     Dates: start: 20220919
  56. MOLNUPIRAVIR [Concomitant]
     Active Substance: MOLNUPIRAVIR
     Indication: COVID-19
     Dosage: 800 MILLIGRAM, BID
     Route: 048
     Dates: start: 20230320, end: 20230324
  57. PANTOPRAZOLE [Concomitant]
     Active Substance: PANTOPRAZOLE
     Indication: Prophylaxis
     Dosage: 40 MILLIGRAM, QD
     Route: 048
     Dates: start: 2020
  58. POTASSIUM CHLORIDE [Concomitant]
     Active Substance: POTASSIUM CHLORIDE
     Indication: Supplementation therapy
     Dosage: DOSE : 1 TABLET
     Route: 048
     Dates: start: 20220919
  59. SULFAMETHOXAZOLE\TRIMETHOPRIM [Concomitant]
     Active Substance: SULFAMETHOXAZOLE\TRIMETHOPRIM
     Indication: Prophylaxis
     Dosage: DOSE : 200/40 MG
     Route: 048
     Dates: start: 20220919
  60. THIAMINE [Concomitant]
     Active Substance: THIAMINE
     Indication: Decreased appetite
     Dosage: 100 MILLIGRAM, QD
     Route: 048
     Dates: start: 20211202
  61. VALACYCLOVIR HYDROCHLORIDE [Concomitant]
     Active Substance: VALACYCLOVIR HYDROCHLORIDE
     Indication: Prophylaxis
     Dosage: 500 MILLIGRAM, BID
     Route: 048
     Dates: start: 2019
  62. ACETAMINOPHEN [Concomitant]
     Active Substance: ACETAMINOPHEN
     Indication: Injection site reaction
     Route: 048
     Dates: start: 20230606, end: 20230613
  63. LORATADINE [Concomitant]
     Active Substance: LORATADINE
     Indication: Injection site reaction
     Dosage: 10 MILLIGRAM, PRN
     Route: 048
     Dates: start: 20230606, end: 20230613

REACTIONS (1)
  - Pneumonia haemophilus [Recovered/Resolved]

NARRATIVE: CASE EVENT DATE: 20221023
